FAERS Safety Report 25644208 (Version 2)
Quarter: 2025Q3

REPORT INFORMATION
  Report Type: Spontaneous
  Country: US (occurrence: US)
  Receive Date: 20250805
  Receipt Date: 20250806
  Transmission Date: 20251021
  Serious: Yes (Death, Life-Threatening, Hospitalization, Other)
  Sender: PFIZER
  Company Number: US-MLMSERVICE-20250729-PI589253-00271-2

PATIENT
  Age: 64 Year
  Sex: Male

DRUGS (5)
  1. METHYLPREDNISOLONE SODIUM SUCCINATE [Suspect]
     Active Substance: METHYLPREDNISOLONE SODIUM SUCCINATE
     Indication: Henoch-Schonlein purpura nephritis
     Route: 042
  2. METHYLPREDNISOLONE SODIUM SUCCINATE [Suspect]
     Active Substance: METHYLPREDNISOLONE SODIUM SUCCINATE
     Route: 042
  3. PREDNISONE [Suspect]
     Active Substance: PREDNISONE
     Indication: Henoch-Schonlein purpura nephritis
     Dosage: 60 MG, 1X/DAY
     Route: 048
  4. PREDNISONE [Suspect]
     Active Substance: PREDNISONE
     Dosage: 80 MG, 1X/DAY
     Route: 048
  5. NAFCILLIN [Concomitant]
     Active Substance: NAFCILLIN SODIUM
     Indication: Staphylococcal bacteraemia

REACTIONS (14)
  - Post infection glomerulonephritis [Fatal]
  - Septic shock [Fatal]
  - Enterococcal bacteraemia [Fatal]
  - Systemic candida [Fatal]
  - Duodenal ulcer perforation [Fatal]
  - Septic vasculitis [Fatal]
  - Multiple organ dysfunction syndrome [Fatal]
  - Retroperitoneal haematoma [Fatal]
  - Condition aggravated [Fatal]
  - Pathogen resistance [Fatal]
  - Klebsiella infection [Fatal]
  - Renal pseudoaneurysm [Fatal]
  - Off label use [Unknown]
  - Drug effective for unapproved indication [Unknown]
